FAERS Safety Report 15530923 (Version 1)
Quarter: 2018Q4

REPORT INFORMATION
  Report Type: Spontaneous
  Country: DE (occurrence: DE)
  Receive Date: 20181018
  Receipt Date: 20181018
  Transmission Date: 20190205
  Serious: Yes (Other)
  Sender: FDA-Public Use
  Company Number: DE-009507513-1810DEU005329

PATIENT
  Sex: Male

DRUGS (2)
  1. TARCEVA [Suspect]
     Active Substance: ERLOTINIB HYDROCHLORIDE
  2. VELMETIA [Suspect]
     Active Substance: METFORMIN\SITAGLIPTIN
     Route: 048

REACTIONS (1)
  - Pancreatic carcinoma [Unknown]
